FAERS Safety Report 7617129-7 (Version None)
Quarter: 2011Q3

REPORT INFORMATION
  Report Type: 
  Country: None (occurrence: None)
  Receive Date: 20110718
  Receipt Date: 20110705
  Transmission Date: 20111222
  Serious: No
  Sender: FDA-Public Use
  Company Number: US-ROXANE LABORATORIES, INC.-2011-RO-00944RO

PATIENT
  Age: 61 Year
  Sex: Female
  Weight: 79 kg

DRUGS (9)
  1. CODEINE SUL TAB [Suspect]
     Indication: PAIN IN EXTREMITY
  2. VICODIN [Suspect]
     Indication: PAIN IN EXTREMITY
     Route: 048
  3. DARVOCET-N 50 [Suspect]
     Indication: PAIN IN EXTREMITY
     Route: 048
  4. CIPROFLOXACIN [Suspect]
     Indication: INFECTION
  5. KEFLEX [Concomitant]
  6. CIPROFLOXACIN [Suspect]
     Indication: PAIN IN EXTREMITY
  7. TYLENOL-500 [Suspect]
     Indication: PAIN IN EXTREMITY
  8. CENTRUM [Concomitant]
  9. ACETYLSALICYLIC ACID SRT [Concomitant]

REACTIONS (7)
  - WEIGHT DECREASED [None]
  - NAUSEA [None]
  - APHAGIA [None]
  - PAIN [None]
  - MALAISE [None]
  - DEPRESSION [None]
  - ALOPECIA [None]
